FAERS Safety Report 5258753-9 (Version None)
Quarter: 2007Q1

REPORT INFORMATION
  Report Type: 
  Country: None (occurrence: None)
  Receive Date: 20061117
  Receipt Date: 20060106
  Transmission Date: 20070707
  Serious: Yes (Other)
  Sender: FDA-Public Use
  Company Number: US-JNJFOC-20060101491

PATIENT
  Age: 49 Year
  Sex: Female
  Weight: 75.7507 kg

DRUGS (6)
  1. LEVAQUIN [Suspect]
     Indication: PNEUMONIA
     Dosage: 500 MG, 1 IN 1 DAY, ORAL
     Route: 048
     Dates: start: 20051202, end: 20051211
  2. CONCERTA [Concomitant]
  3. CELEXA [Concomitant]
  4. ADVAIR (SERETIDE MITE) [Concomitant]
  5. FLONASE [Concomitant]
  6. ALBUTEROL [Concomitant]

REACTIONS (5)
  - DIZZINESS [None]
  - HYPOAESTHESIA [None]
  - OEDEMA PERIPHERAL [None]
  - PAIN IN EXTREMITY [None]
  - PHARYNGEAL OEDEMA [None]
